FAERS Safety Report 4283591-3 (Version None)
Quarter: 2004Q1

REPORT INFORMATION
  Report Type: 
  Country: None (occurrence: None)
  Receive Date: 20040121
  Receipt Date: 20030930
  Transmission Date: 20041129
  Serious: Yes (Other)
  Sender: FDA-Public Use
  Company Number: A03200302293

PATIENT
  Sex: Male

DRUGS (2)
  1. PLAVIX [Suspect]
     Dosage: ORAL
     Route: 048
     Dates: start: 20030901, end: 20031001
  2. ACETYLSALICYLIC ACID [Concomitant]

REACTIONS (3)
  - EYE HAEMORRHAGE [None]
  - HAEMATURIA TRAUMATIC [None]
  - VITREOUS FLOATERS [None]
